FAERS Safety Report 23262025 (Version 3)
Quarter: 2025Q4

REPORT INFORMATION
  Report Type: Report from Study
  Country: KR (occurrence: KR)
  Receive Date: 20231205
  Receipt Date: 20251219
  Transmission Date: 20260117
  Serious: Yes (Hospitalization)
  Sender: ABBVIE
  Company Number: KR-ABBVIE-5516797

PATIENT
  Age: 42 Year
  Sex: Male
  Weight: 75 kg

DRUGS (8)
  1. RINVOQ [Suspect]
     Active Substance: UPADACITINIB
     Indication: Dermatitis atopic
     Dosage: FILM-COATED
     Route: 048
     Dates: start: 20230111, end: 2023
  2. RINVOQ [Suspect]
     Active Substance: UPADACITINIB
     Indication: Dermatitis atopic
     Dosage: FILM-COATED
     Route: 048
     Dates: start: 20230627, end: 20230706
  3. RINVOQ [Suspect]
     Active Substance: UPADACITINIB
     Indication: Dermatitis atopic
     Dosage: FILM-COATED
     Route: 048
     Dates: start: 20230530, end: 20230725
  4. RINVOQ [Suspect]
     Active Substance: UPADACITINIB
     Indication: Dermatitis atopic
     Dosage: FILM-COATED
     Route: 048
     Dates: start: 20230307, end: 20230529
  5. RINVOQ [Suspect]
     Active Substance: UPADACITINIB
     Indication: Dermatitis atopic
     Dosage: FILM-COATED
     Route: 048
     Dates: start: 2023, end: 20230912
  6. Emol [Concomitant]
     Indication: Dermatitis atopic
     Dosage: SOLUTION 75ML
     Dates: start: 20230111
  7. DERMOTASONE [Concomitant]
     Indication: Dermatitis atopic
     Dosage: MLE CREAM 30G
     Dates: start: 20230111
  8. DESOWEN [Concomitant]
     Active Substance: DESONIDE
     Indication: Dermatitis atopic
     Dosage: LOTION 0.05%
     Dates: start: 20230207

REACTIONS (1)
  - Drug eruption [Recovered/Resolved]

NARRATIVE: CASE EVENT DATE: 20230912
